FAERS Safety Report 4557783-X (Version None)
Quarter: 2005Q1

REPORT INFORMATION
  Report Type: 
  Country: None (occurrence: None)
  Receive Date: 20050118
  Receipt Date: 20050113
  Transmission Date: 20050727
  Serious: Yes (Other)
  Sender: FDA-Public Use
  Company Number: GRWYE338613JAN05

PATIENT
  Age: 27 Year
  Sex: Male

DRUGS (2)
  1. EFFEXOR [Suspect]
     Indication: DEPRESSION
     Dosage: 225 M G 1X PER 1 DAY ORAL
     Route: 048
     Dates: start: 20041221, end: 20050113
  2. XANAX [Concomitant]

REACTIONS (3)
  - HAEMATOCHEZIA [None]
  - HAEMORRHOIDAL HAEMORRHAGE [None]
  - INTESTINAL HAEMORRHAGE [None]
